FAERS Safety Report 11336374 (Version 1)
Quarter: 2015Q3

REPORT INFORMATION
  Report Type: Spontaneous
  Country: US (occurrence: US)
  Receive Date: 20150804
  Receipt Date: 20150804
  Transmission Date: 20151125
  Serious: No
  Sender: FDA-Public Use
  Company Number: US-ASTRAZENECA-2015SE72564

PATIENT
  Sex: Female
  Weight: 85.3 kg

DRUGS (12)
  1. LYRICA [Concomitant]
     Active Substance: PREGABALIN
     Indication: NEUROPATHY PERIPHERAL
  2. DOXAZOXIN [Concomitant]
  3. LABETALOL [Concomitant]
     Active Substance: LABETALOL\LABETALOL HYDROCHLORIDE
  4. BYDUREON [Suspect]
     Active Substance: EXENATIDE
     Indication: TYPE 2 DIABETES MELLITUS
     Route: 058
  5. FARXIGA [Suspect]
     Active Substance: DAPAGLIFLOZIN PROPANEDIOL
     Indication: TYPE 2 DIABETES MELLITUS
     Route: 048
  6. TRIAMTERENE HTCZ [Concomitant]
     Indication: DIURETIC THERAPY
     Dosage: 50/70MG
  7. NIACIN. [Concomitant]
     Active Substance: NIACIN
  8. HYDRALAZINE [Concomitant]
     Active Substance: HYDRALAZINE HYDROCHLORIDE
     Indication: HYPERTENSION
  9. TANTOPRAZOLE [Concomitant]
     Indication: GASTROOESOPHAGEAL REFLUX DISEASE
  10. LANTUS [Concomitant]
     Active Substance: INSULIN GLARGINE
     Dosage: 50, AT NIGHT
  11. ATORVASTATIN [Concomitant]
     Active Substance: ATORVASTATIN
     Indication: BLOOD CHOLESTEROL
  12. ENALAPRIL [Concomitant]
     Active Substance: ENALAPRIL
     Indication: HYPERTENSION

REACTIONS (6)
  - Weight decreased [Unknown]
  - Underdose [Unknown]
  - Injection site pain [Unknown]
  - Device failure [Unknown]
  - Fluid retention [Recovered/Resolved]
  - Pollakiuria [Unknown]
